FAERS Safety Report 18196598 (Version 2)
Quarter: 2020Q3

REPORT INFORMATION
  Report Type: Report from Study
  Country: None (occurrence: US)
  Receive Date: 20200826
  Receipt Date: 20200923
  Transmission Date: 20201103
  Serious: Yes (Other)
  Sender: FDA-Public Use
  Company Number: US-ABBVIE-20K-163-3536508-00

PATIENT
  Age: 67 Year
  Sex: Male
  Weight: 120.31 kg

DRUGS (5)
  1. INSULIN [Concomitant]
     Active Substance: INSULIN NOS
     Indication: DIABETES MELLITUS
  2. PAXIL [Concomitant]
     Active Substance: PAROXETINE HYDROCHLORIDE
     Indication: ANTIDEPRESSANT THERAPY
  3. HUMIRA [Suspect]
     Active Substance: ADALIMUMAB
     Indication: PSORIASIS
     Dosage: HUMIRA CITRATE FREE
     Route: 058
     Dates: start: 2018
  4. LIPITOR [Concomitant]
     Active Substance: ATORVASTATIN CALCIUM
     Indication: BLOOD CHOLESTEROL INCREASED
  5. ZYPREXA [Concomitant]
     Active Substance: OLANZAPINE
     Indication: SCHIZOPHRENIA

REACTIONS (1)
  - Melanocytic naevus [Recovered/Resolved]

NARRATIVE: CASE EVENT DATE: 20200814
